FAERS Safety Report 8330946-3 (Version None)
Quarter: 2012Q2

REPORT INFORMATION
  Report Type: 
  Country: None (occurrence: None)
  Receive Date: 20120502
  Receipt Date: 20120403
  Transmission Date: 20120825
  Serious: Yes (Hospitalization, Other)
  Sender: FDA-Public Use
  Company Number: US-AMGEN-USASP2012021201

PATIENT
  Age: 56 Year
  Sex: Male
  Weight: 111.5 kg

DRUGS (4)
  1. HUMIRA [Concomitant]
     Dosage: 40 MG, FREQUENCY UNSPECIFIED
     Route: 058
     Dates: start: 20090101
  2. STELARA [Concomitant]
     Indication: PSORIASIS
     Dosage: 90 MG, 1 IN 12 WEEK
     Route: 058
     Dates: start: 20100519, end: 20101101
  3. CELLCEPT [Concomitant]
     Indication: PSORIASIS
     Dosage: 1 G, BID
     Route: 048
     Dates: start: 20100301, end: 20100701
  4. ENBREL [Suspect]
     Indication: PSORIASIS
     Dosage: UNK
     Dates: start: 20090101

REACTIONS (1)
  - NON-HODGKIN'S LYMPHOMA [None]
